FAERS Safety Report 18242849 (Version 1)
Quarter: 2020Q3

REPORT INFORMATION
  Report Type: Spontaneous
  Country: CA (occurrence: CA)
  Receive Date: 20200908
  Receipt Date: 20200908
  Transmission Date: 20201103
  Serious: Yes (Death)
  Sender: FDA-Public Use
  Company Number: CA-PFIZER INC-2020344356

PATIENT
  Age: 33 Year
  Sex: Male

DRUGS (6)
  1. PREGABALIN. [Suspect]
     Active Substance: PREGABALIN
  2. CANNABIS [Interacting]
     Active Substance: CANNABIS SATIVA SUBSP. INDICA TOP
  3. QUETIAPINE. [Interacting]
     Active Substance: QUETIAPINE
  4. CLONAZEPAM. [Interacting]
     Active Substance: CLONAZEPAM
  5. METHADONE [Interacting]
     Active Substance: METHADONE HYDROCHLORIDE
  6. NAPROXEN. [Interacting]
     Active Substance: NAPROXEN

REACTIONS (3)
  - Drug interaction [Fatal]
  - Sudden cardiac death [Fatal]
  - Withdrawal arrhythmia [Fatal]
